FAERS Safety Report 7608917-1 (Version None)
Quarter: 2011Q3

REPORT INFORMATION
  Report Type: 
  Country: None (occurrence: None)
  Receive Date: 20110714
  Receipt Date: 20110621
  Transmission Date: 20111222
  Serious: Yes (Death)
  Sender: FDA-Public Use
  Company Number: US-GLAXOSMITHKLINE-A0790240A

PATIENT
  Age: 65 Year
  Sex: Male
  Weight: 154.5 kg

DRUGS (5)
  1. PIROXICAM [Concomitant]
  2. AVANDIA [Suspect]
     Indication: DIABETES MELLITUS
     Dosage: 8MG PER DAY
     Route: 048
     Dates: start: 20051118, end: 20070621
  3. LISINOPRIL [Concomitant]
  4. ZOCOR [Concomitant]
  5. TEMAZEPAM [Concomitant]

REACTIONS (2)
  - CARDIO-RESPIRATORY ARREST [None]
  - MYOCARDIAL INFARCTION [None]
